FAERS Safety Report 24007720 (Version 1)
Quarter: 2024Q2

REPORT INFORMATION
  Report Type: Spontaneous
  Country: GB (occurrence: GB)
  Receive Date: 20240625
  Receipt Date: 20240625
  Transmission Date: 20240716
  Serious: Yes (Other)
  Sender: FDA-Public Use
  Company Number: None

PATIENT
  Age: 18 Year
  Sex: Female
  Weight: 53 kg

DRUGS (3)
  1. LISDEXAMFETAMINE DIMESYLATE [Suspect]
     Active Substance: LISDEXAMFETAMINE DIMESYLATE
     Indication: Adverse reaction
     Dosage: 30 MILLIGRAM, QD
     Route: 065
     Dates: start: 20240611, end: 20240613
  2. SERTRALINE [Concomitant]
     Active Substance: SERTRALINE HYDROCHLORIDE
     Indication: Depressed mood
     Dosage: UNK
     Route: 065
     Dates: start: 20240516
  3. GEDAREL [Concomitant]
     Indication: Contraception
     Dosage: UNK
     Route: 065
     Dates: start: 20240509

REACTIONS (9)
  - Pyrexia [Recovering/Resolving]
  - Tachycardia [Recovered/Resolved]
  - Blood pressure decreased [Recovering/Resolving]
  - Dizziness [Recovered/Resolved]
  - Headache [Recovered/Resolved]
  - Chest pain [Recovered/Resolved]
  - Nausea [Recovered/Resolved]
  - Vomiting [Recovered/Resolved]
  - Diarrhoea [Recovered/Resolved]

NARRATIVE: CASE EVENT DATE: 20240611
